FAERS Safety Report 9886271 (Version 2)
Quarter: 2014Q1

REPORT INFORMATION
  Report Type: Spontaneous
  Country: IE (occurrence: IE)
  Receive Date: 20140210
  Receipt Date: 20140215
  Transmission Date: 20141002
  Serious: Yes (Hospitalization)
  Sender: FDA-Public Use
  Company Number: US-ASTRAZENECA-2014SE08571

PATIENT
  Age: 241 Day
  Sex: Male

DRUGS (3)
  1. SYNAGIS [Suspect]
     Indication: HEART DISEASE CONGENITAL
     Route: 030
     Dates: start: 20131203
  2. ABIDEC [Concomitant]
  3. FER-IN-SOL [Concomitant]

REACTIONS (12)
  - Vomiting [Recovering/Resolving]
  - Diarrhoea [Unknown]
  - Pulmonary congestion [Recovering/Resolving]
  - Bronchiolitis [Unknown]
  - Pneumothorax [Unknown]
  - Implant site infection [Unknown]
  - Wheezing [Recovering/Resolving]
  - Adverse event [Recovering/Resolving]
  - Oxygen saturation decreased [Recovering/Resolving]
  - Stoma site pain [Recovering/Resolving]
  - Body temperature increased [Unknown]
  - Respiratory syncytial virus test positive [Recovered/Resolved]
